FAERS Safety Report 9046517 (Version 3)
Quarter: 2013Q4

REPORT INFORMATION
  Report Type: Spontaneous
  Country: BR (occurrence: BR)
  Receive Date: 20130204
  Receipt Date: 20131025
  Transmission Date: 20140711
  Serious: Yes (Other)
  Sender: FDA-Public Use
  Company Number: BR-AMGEN-BRASP2013006968

PATIENT
  Age: 56 Year
  Sex: Male
  Weight: 78 kg

DRUGS (14)
  1. ENBREL [Suspect]
     Indication: RHEUMATOID ARTHRITIS
     Dosage: 50 MG, WEEKLY
     Route: 058
     Dates: start: 2012
  2. ENBREL [Suspect]
     Dosage: 50 MG, WEEKLY
     Route: 058
     Dates: start: 201301
  3. TRAMAL [Suspect]
     Indication: BACK PAIN
     Dosage: UNK
     Route: 065
     Dates: start: 20121224
  4. ARAVA [Suspect]
     Indication: PRODUCT USED FOR UNKNOWN INDICATION
     Dosage: 1 TABLET OF 20 MG, 1X/DAY (IN THE MORNING)
     Route: 065
     Dates: start: 2003
  5. ARAVA [Suspect]
     Dosage: 1 TABLET OF 20 MG, 1X/DAY (IN THE MORNING)
     Route: 065
     Dates: start: 201301
  6. MORPHINE [Suspect]
     Indication: BACK PAIN
     Dosage: UNK
     Route: 065
     Dates: start: 20121224
  7. INSULIN [Concomitant]
     Indication: DIABETES MELLITUS
     Dosage: UNK
     Route: 065
     Dates: start: 2008
  8. METFORMIN [Concomitant]
     Indication: DIABETES MELLITUS
     Dosage: UNK
     Route: 065
     Dates: start: 2008
  9. ATENOLOL [Concomitant]
     Indication: HYPERTENSION
     Dosage: 100 MG, 2X/DAY
     Route: 065
     Dates: start: 2008
  10. RASILEZ [Concomitant]
     Indication: HYPERTENSION
     Dosage: UNK
     Route: 065
     Dates: start: 2008
  11. ATENSINE [Concomitant]
     Indication: HYPERTENSION
     Dosage: UNK
     Route: 065
     Dates: start: 2008
  12. AMITRIPTYLINE [Concomitant]
     Dosage: UNK
     Route: 065
     Dates: start: 2003
  13. TRYPTANOL                          /00002202/ [Concomitant]
     Indication: DEPRESSION
     Dosage: 75 MG, 2X/DAY
     Route: 065
  14. LORAX                              /00273201/ [Concomitant]
     Indication: DEPRESSION
     Dosage: 2 MG, 2X/DAY
     Route: 065

REACTIONS (13)
  - Rheumatoid arthritis [Unknown]
  - Feeling abnormal [Unknown]
  - Back pain [Unknown]
  - Drug hypersensitivity [Unknown]
  - Throat tightness [Unknown]
  - Drug ineffective [Unknown]
  - Spinal disorder [Unknown]
  - Blood pressure increased [Unknown]
  - Decreased immune responsiveness [Unknown]
  - Cough [Unknown]
  - Pneumonia [Unknown]
  - Influenza [Unknown]
  - Nasopharyngitis [Unknown]
